FAERS Safety Report 4465040-5 (Version None)
Quarter: 2004Q4

REPORT INFORMATION
  Report Type: 
  Country: None (occurrence: None)
  Receive Date: 20041004
  Receipt Date: 20040922
  Transmission Date: 20050328
  Serious: Yes (Hospitalization)
  Sender: FDA-Public Use
  Company Number: US-ROCHE-381374

PATIENT
  Age: 39 Year
  Sex: Male
  Weight: 86 kg

DRUGS (3)
  1. PEGASYS [Suspect]
     Indication: HEPATITIS C
     Route: 058
     Dates: start: 20040407
  2. COPEGUS [Suspect]
     Indication: HEPATITIS C
     Route: 048
     Dates: start: 20040407
  3. NEUPOGEN [Concomitant]
     Route: 058
     Dates: start: 20040728, end: 20040820

REACTIONS (2)
  - ERYTHEMA [None]
  - RASH ERYTHEMATOUS [None]
